FAERS Safety Report 5059912-0 (Version None)
Quarter: 2006Q3

REPORT INFORMATION
  Report Type: 
  Country: None (occurrence: None)
  Receive Date: 20060718
  Receipt Date: 20060630
  Transmission Date: 20061208
  Serious: Yes (Hospitalization, Other)
  Sender: FDA-Public Use
  Company Number: US200606006288

PATIENT
  Sex: Female

DRUGS (3)
  1. EVISTA [Suspect]
     Indication: OSTEOPOROSIS
     Dosage: ORAL
     Route: 048
     Dates: start: 20030101
  2. DIABETES MEDICATION (METFORMIN HYDROCHLORIDE) [Concomitant]
  3. BLOOD PRESSURE MEDICATION (ATENOLOL) [Concomitant]

REACTIONS (3)
  - ANAEMIA [None]
  - GASTROINTESTINAL ULCER [None]
  - HAEMORRHAGE [None]
